FAERS Safety Report 6267413-7 (Version None)
Quarter: 2009Q3

REPORT INFORMATION
  Report Type: 
  Country: None (occurrence: None)
  Receive Date: 20090714
  Receipt Date: 20090702
  Transmission Date: 20100115
  Serious: Yes (Other)
  Sender: FDA-Public Use
  Company Number: JP-PFIZER INC-2009236688

PATIENT

DRUGS (1)
  1. CEFOBID [Suspect]
     Indication: CELLULITIS
     Dates: start: 20090630

REACTIONS (1)
  - SHOCK [None]
